FAERS Safety Report 9616009 (Version 1)
Quarter: 2013Q4

REPORT INFORMATION
  Report Type: Spontaneous
  Country: US (occurrence: US)
  Receive Date: 20131011
  Receipt Date: 20131011
  Transmission Date: 20140711
  Serious: Yes (Death, Other)
  Sender: FDA-Public Use
  Company Number: US-JNJFOC-20131002449

PATIENT
  Age: 72 Year
  Sex: Male
  Weight: 55.2 kg

DRUGS (17)
  1. DURAGESIC [Suspect]
     Indication: BACK PAIN
     Route: 062
     Dates: start: 20130425
  2. DURAGESIC [Suspect]
     Indication: BACK PAIN
     Route: 062
     Dates: start: 20130222
  3. ERLOTINIB [Suspect]
     Indication: NON-SMALL CELL LUNG CANCER
     Route: 065
     Dates: start: 20130214, end: 20130414
  4. DACOMITINIB [Suspect]
     Indication: NON-SMALL CELL LUNG CANCER
     Route: 065
     Dates: start: 20130214, end: 20130414
  5. HYDROCODONE/ACETAMINOPHEN [Concomitant]
     Indication: PAIN
     Route: 065
     Dates: start: 20130421
  6. DOXYCYCLINE [Concomitant]
     Indication: RASH
     Route: 065
     Dates: start: 20130315
  7. IMODIUM [Concomitant]
     Indication: DIARRHOEA
     Route: 065
     Dates: start: 20130214
  8. MAGIC MOUTHWASH [Concomitant]
     Indication: ORAL CANDIDIASIS
     Route: 065
     Dates: start: 20130301
  9. SPIRIVA [Concomitant]
     Indication: ASTHMA
     Route: 065
     Dates: start: 2011
  10. SYMBICORT [Concomitant]
     Indication: ASTHMA
     Route: 065
     Dates: start: 2011
  11. PRO-AIR [Concomitant]
     Indication: ASTHMA
     Route: 065
     Dates: start: 2006
  12. NYSTATIN [Concomitant]
     Indication: FUNGAL INFECTION
     Route: 065
     Dates: start: 20130320
  13. TEMAZEPAM [Concomitant]
     Indication: INSOMNIA
     Route: 065
     Dates: start: 20121115
  14. VITAMIN C [Concomitant]
     Indication: SUPPLEMENTATION THERAPY
     Route: 065
     Dates: start: 20121115
  15. VITAMIN D3 [Concomitant]
     Indication: SUPPLEMENTATION THERAPY
     Route: 065
     Dates: start: 20130401
  16. ZOFRAN [Concomitant]
     Indication: NAUSEA
     Route: 065
     Dates: start: 20121126
  17. HYDROCODONE [Concomitant]
     Indication: PAIN
     Route: 048
     Dates: start: 20121126

REACTIONS (4)
  - Respiratory failure [Fatal]
  - Lung neoplasm [Fatal]
  - Non-small cell lung cancer [Fatal]
  - Renal failure acute [Recovered/Resolved]
